FAERS Safety Report 10900373 (Version 3)
Quarter: 2015Q2

REPORT INFORMATION
  Report Type: Report from Study
  Country: US (occurrence: US)
  Receive Date: 20150310
  Receipt Date: 20150609
  Transmission Date: 20150821
  Serious: Yes (Other)
  Sender: FDA-Public Use
  Company Number: US-BIOGENIDEC-2015BI023622

PATIENT
  Age: 56 Year
  Sex: Female

DRUGS (2)
  1. TECFIDERA [Suspect]
     Active Substance: DIMETHYL FUMARATE
     Indication: MULTIPLE SCLEROSIS
     Route: 048
     Dates: start: 2013
  2. TECFIDERA [Suspect]
     Active Substance: DIMETHYL FUMARATE
     Indication: MULTIPLE SCLEROSIS
     Route: 048
     Dates: start: 201502

REACTIONS (11)
  - Stress [Not Recovered/Not Resolved]
  - Cognitive disorder [Not Recovered/Not Resolved]
  - Drug dose omission [Not Recovered/Not Resolved]
  - Seizure [Unknown]
  - Depression [Not Recovered/Not Resolved]
  - Dental caries [Unknown]
  - Periodontal disease [Unknown]
  - Lymphopenia [Unknown]
  - Pain [Not Recovered/Not Resolved]
  - Migraine [Not Recovered/Not Resolved]
  - Apathy [Not Recovered/Not Resolved]

NARRATIVE: CASE EVENT DATE: 201412
